FAERS Safety Report 8823810 (Version 3)
Quarter: 2012Q4

REPORT INFORMATION
  Report Type: 
  Country: JP (occurrence: JP)
  Receive Date: 20121003
  Receipt Date: 20121101
  Transmission Date: 20130627
  Serious: Yes (Other)
  Sender: FDA-Public Use
  Company Number: JP-PFIZER INC-2012242002

PATIENT
  Age: 59 Year
  Sex: Male

DRUGS (5)
  1. VIAGRA [Suspect]
     Dosage: 100 mg, approximately once in a week
     Route: 048
     Dates: end: 201206
  2. LOXONIN [Concomitant]
  3. MUCOSTA [Concomitant]
     Route: 048
  4. MEILAX [Concomitant]
     Indication: LIGHT SLEEP
  5. MEILAX [Concomitant]
     Indication: AROUSAL NIGHT

REACTIONS (15)
  - Chest pain [Unknown]
  - Cardiac disorder [Unknown]
  - Angina pectoris [Unknown]
  - Dyspnoea exertional [Unknown]
  - Dizziness [Unknown]
  - Gait disturbance [Unknown]
  - Blood glucose increased [Unknown]
  - Ocular hyperaemia [Unknown]
  - Abdominal pain upper [Unknown]
  - Back pain [Unknown]
  - Fatigue [Unknown]
  - Nausea [Unknown]
  - Poor quality sleep [Unknown]
  - Erythema [Unknown]
  - Dysphonia [Unknown]
